FAERS Safety Report 5373033-9 (Version None)
Quarter: 2007Q2

REPORT INFORMATION
  Report Type: 
  Country: None (occurrence: None)
  Receive Date: 20070619
  Receipt Date: 20070420
  Transmission Date: 20071010
  Serious: No
  Sender: FDA-Public Use
  Company Number: 2007US000864

PATIENT
  Age: 74 Year
  Sex: Female

DRUGS (7)
  1. VESICARE [Suspect]
     Indication: HYPERTONIC BLADDER
     Dosage: 5 MG, UID/QD, ORAL
     Route: 048
     Dates: start: 20070411, end: 20070415
  2. DILTIAZEM [Concomitant]
  3. THYREX (LEVOTHYROXINE SODIUM) [Concomitant]
  4. ALLERGY MEDICATION [Concomitant]
  5. FISH OIL (FISH OIL) [Concomitant]
  6. CINNAMON (CINNAMOMUM VERUM) [Concomitant]
  7. ASPIRIN [Concomitant]

REACTIONS (1)
  - LIVER FUNCTION TEST ABNORMAL [None]
